FAERS Safety Report 6144274-8 (Version None)
Quarter: 2009Q2

REPORT INFORMATION
  Report Type: 
  Country: None (occurrence: None)
  Receive Date: 20090406
  Receipt Date: 20090304
  Transmission Date: 20091009
  Serious: No
  Sender: FDA-Public Use
  Company Number: US-BAYER-200911407NA

PATIENT
  Age: 52 Year
  Sex: Female

DRUGS (1)
  1. CLIMARA [Suspect]
     Indication: PROPHYLAXIS
     Route: 062
     Dates: start: 20090101

REACTIONS (7)
  - BLOOD PRESSURE INCREASED [None]
  - FATIGUE [None]
  - HEART RATE INCREASED [None]
  - NO ADVERSE EVENT [None]
  - PERSONALITY CHANGE [None]
  - PRODUCT QUALITY ISSUE [None]
  - RESORPTION BONE INCREASED [None]
